FAERS Safety Report 7248039-5 (Version None)
Quarter: 2011Q1

REPORT INFORMATION
  Report Type: 
  Country: None (occurrence: None)
  Receive Date: 20110127
  Receipt Date: 20100208
  Transmission Date: 20110831
  Serious: No
  Sender: FDA-Public Use
  Company Number: US-MYLANLABS-2010S1000689

PATIENT
  Age: 82 Year
  Sex: Female
  Weight: 78.93 kg

DRUGS (21)
  1. LOVAZA [Concomitant]
  2. ATENOLOL [Concomitant]
  3. NITROGLYCERIN [Concomitant]
     Route: 062
  4. GLYBURIDE [Concomitant]
  5. PHENYTOIN SODIUM CAP [Suspect]
     Indication: CONVULSION
     Route: 048
     Dates: start: 20070101
  6. METFORMIN [Concomitant]
  7. AMLODIPINE [Concomitant]
  8. LISINOPRIL [Concomitant]
  9. KEPPRA [Concomitant]
  10. PLAVIX [Concomitant]
  11. ACETAMINOPHEN AND HYDROCODONE BITARTRATE [Concomitant]
  12. ACTOS [Concomitant]
  13. HYDRALAZINE HCL [Concomitant]
  14. HYDROCHLOROTHIAZIDE [Concomitant]
  15. GEMFIBROZIL [Concomitant]
  16. LORAZEPAM [Concomitant]
  17. SIMVASTATIN [Concomitant]
  18. CLONIDINE [Concomitant]
  19. GABAPENTIN [Concomitant]
  20. VICODIN [Concomitant]
  21. ALLERGY RELIEF /00884302/ [Concomitant]

REACTIONS (1)
  - ANTICONVULSANT DRUG LEVEL BELOW THERAPEUTIC [None]
